FAERS Safety Report 9517593 (Version 2)
Quarter: 2013Q3

REPORT INFORMATION
  Report Type: Spontaneous
  Country: JP (occurrence: JP)
  Receive Date: 20130912
  Receipt Date: 20130912
  Transmission Date: 20140515
  Serious: Yes (Death, Life-Threatening)
  Sender: FDA-Public Use
  Company Number: JP-AMGEN-JPNSP2012048528

PATIENT
  Age: 54 Year
  Sex: Male
  Weight: 63 kg

DRUGS (12)
  1. RANMARK [Suspect]
     Indication: BONE LESION
     Dosage: 120 MG, QD
     Route: 058
     Dates: start: 20120615, end: 20120615
  2. MOHRUS TAPE [Concomitant]
     Indication: ANALGESIC THERAPY
     Dosage: 40 MG, BID
     Route: 061
     Dates: start: 20120411
  3. PARIET [Concomitant]
     Indication: GASTRIC ULCER
     Dosage: 10 MG, QD
     Route: 048
     Dates: start: 20100822
  4. WARFARIN [Concomitant]
     Indication: VENOUS THROMBOSIS
     Dosage: 1 MG, BID
     Route: 048
     Dates: start: 20101022
  5. WARFARIN [Concomitant]
     Dosage: UNKNOWN
     Route: 048
     Dates: start: 20101022, end: 20120716
  6. FLAVITAN [Concomitant]
     Indication: STOMATITIS
     Dosage: 10 MG, TID
     Route: 048
     Dates: start: 20120502
  7. FLAVITAN [Concomitant]
     Dosage: UNKNOWN
     Route: 048
     Dates: start: 20120502, end: 20120716
  8. CELECOX [Concomitant]
     Indication: ANALGESIC THERAPY
     Dosage: 100 MG, BID
     Route: 048
     Dates: start: 20120411
  9. LOXONIN [Concomitant]
     Indication: ANALGESIC THERAPY
     Dosage: 60 MG, TID
     Route: 048
     Dates: start: 20120411
  10. LOXONIN [Concomitant]
     Dosage: UNKNOWN
     Route: 048
     Dates: start: 20120411, end: 20120716
  11. XALKORI (CRIZOTINIB) [Concomitant]
     Indication: NON-SMALL CELL LUNG CANCER
     Dosage: 250 MG, BID
     Route: 048
     Dates: start: 20120704, end: 20120709
  12. CALCICOL [Concomitant]
     Dosage: 850 MG, QD
     Route: 042
     Dates: start: 20120709, end: 20120713

REACTIONS (4)
  - Non-small cell lung cancer [Fatal]
  - Cardiac arrest [Fatal]
  - Hypocalcaemia [Fatal]
  - Blood alkaline phosphatase increased [Unknown]
